FAERS Safety Report 6966967-2 (Version None)
Quarter: 2010Q3

REPORT INFORMATION
  Report Type: 
  Country: None (occurrence: None)
  Receive Date: 20100907
  Receipt Date: 20100818
  Transmission Date: 20110219
  Serious: Yes (Other)
  Sender: FDA-Public Use
  Company Number: US-BAYER-201036922GPV

PATIENT

DRUGS (3)
  1. DACARBAZINE [Suspect]
     Indication: HODGKIN'S DISEASE
     Route: 064
  2. ADRIAMYCIN PFS [Suspect]
     Indication: HODGKIN'S DISEASE
     Route: 064
  3. VINBLASTINE SULFATE [Suspect]
     Indication: HODGKIN'S DISEASE
     Route: 064

REACTIONS (1)
  - SMALL FOR DATES BABY [None]
